FAERS Safety Report 13351576 (Version 2)
Quarter: 2017Q1

REPORT INFORMATION
  Report Type: Report from Study
  Country: US (occurrence: US)
  Receive Date: 20170320
  Receipt Date: 20170328
  Transmission Date: 20170429
  Serious: No
  Sender: FDA-Public Use
  Company Number: US-ASTRAZENECA-2017SE25879

PATIENT
  Sex: Male
  Weight: 119.7 kg

DRUGS (18)
  1. BRILINTA [Suspect]
     Active Substance: TICAGRELOR
     Indication: MYOCARDIAL INFARCTION
     Route: 048
     Dates: start: 20160829
  2. LOPRESSOR [Concomitant]
     Active Substance: METOPROLOL TARTRATE
     Route: 048
  3. NITROSTAT [Concomitant]
     Active Substance: NITROGLYCERIN
     Indication: CHEST PAIN
     Dosage: PLACE 1 DOSAGE UNDER THO TONGUE AS NEEDED
     Route: 048
     Dates: start: 20131025
  4. NORVASC [Concomitant]
     Active Substance: AMLODIPINE BESYLATE
     Route: 048
     Dates: start: 20151123
  5. COENZYME Q10 [Concomitant]
     Active Substance: UBIDECARENONE
     Route: 048
  6. REPATHA [Concomitant]
     Active Substance: EVOLOCUMAB
     Dosage: 140 MG/ML SOLUTION INJECT 1 ML INTO THE SKIN EVERY 14 DAYS
     Dates: start: 20161215
  7. DOCUSATE SODIUM. [Concomitant]
     Active Substance: DOCUSATE SODIUM
     Route: 048
  8. PNEUMOCOCCAL CONJUGATE VACCINE [Concomitant]
     Active Substance: PNEUMOCOCCAL VACCINE POLYVALENT
     Dates: start: 20160301
  9. FISH OIL [Concomitant]
     Active Substance: FISH OIL
     Route: 048
  10. PNEUMOCOCCAL POLYSACCHARIDE VACCINE [Concomitant]
     Active Substance: PNEUMOCOCCAL VACCINE POLYVALENT
     Dates: start: 20131025
  11. ASPIRIN. [Concomitant]
     Active Substance: ASPIRIN
     Route: 048
  12. PRILOSEC [Concomitant]
     Active Substance: OMEPRAZOLE MAGNESIUM
     Route: 048
     Dates: start: 20170117
  13. ZYLOPRIM [Concomitant]
     Active Substance: ALLOPURINOL
     Route: 048
  14. ZESTRIL [Suspect]
     Active Substance: LISINOPRIL
     Dosage: 10.0MG UNKNOWN
     Route: 048
  15. ZETIA [Concomitant]
     Active Substance: EZETIMIBE
     Route: 048
  16. LOPRESSOR [Concomitant]
     Active Substance: METOPROLOL TARTRATE
     Route: 048
  17. ZYLOPRIM [Concomitant]
     Active Substance: ALLOPURINOL
     Route: 048
     Dates: start: 20170123
  18. ZYRTEC [Concomitant]
     Active Substance: CETIRIZINE HYDROCHLORIDE
     Dosage: 10.0MG AS REQUIRED
     Route: 048

REACTIONS (12)
  - Drug hypersensitivity [Unknown]
  - Myalgia [Unknown]
  - Chest pain [Unknown]
  - Abdominal pain [Unknown]
  - Pulmonary mass [Unknown]
  - Cough [Unknown]
  - Dyspnoea exertional [Recovered/Resolved]
  - Excessive granulation tissue [Unknown]
  - Gout [Unknown]
  - Palpitations [Unknown]
  - Fatigue [Unknown]
  - Benign prostatic hyperplasia [Unknown]
